FAERS Safety Report 23503391 (Version 2)
Quarter: 2024Q1

REPORT INFORMATION
  Report Type: Spontaneous
  Country: DE (occurrence: DE)
  Receive Date: 20240208
  Receipt Date: 20240212
  Transmission Date: 20240409
  Serious: Yes (Other)
  Sender: FDA-Public Use
  Company Number: DE-JNJFOC-20240211155

PATIENT
  Sex: Male

DRUGS (2)
  1. REMICADE [Suspect]
     Active Substance: INFLIXIMAB
     Indication: Large intestine infection
     Route: 041
     Dates: start: 20220908
  2. REMICADE [Suspect]
     Active Substance: INFLIXIMAB
     Route: 041
     Dates: start: 20220921

REACTIONS (10)
  - Acute abdomen [Unknown]
  - Large intestine perforation [Unknown]
  - Abdominal wound dehiscence [Unknown]
  - Intestinal perforation [Unknown]
  - Cytomegalovirus colitis [Unknown]
  - Pneumocystis jirovecii pneumonia [Unknown]
  - Sepsis [Unknown]
  - Intensive care unit acquired weakness [Unknown]
  - Diverticulum [Unknown]
  - Off label use [Unknown]

NARRATIVE: CASE EVENT DATE: 20220101
